FAERS Safety Report 6457219-8 (Version None)
Quarter: 2009Q4

REPORT INFORMATION
  Report Type: 
  Country: None (occurrence: None)
  Receive Date: 20091125
  Receipt Date: 20091113
  Transmission Date: 20100525
  Serious: Yes (Hospitalization)
  Sender: FDA-Public Use
  Company Number: TR-ELI_LILLY_AND_COMPANY-TR200911003484

PATIENT
  Sex: Female

DRUGS (3)
  1. HUMALOG MIX 50/50 [Suspect]
     Indication: DIABETES MELLITUS
     Dosage: 20 U, 3/D
     Route: 058
  2. CARDURA [Concomitant]
     Indication: HYPERTENSION
     Dosage: UNK, 2/D
     Route: 048
  3. MONOKET [Concomitant]
     Indication: CARDIAC DISORDER
     Dosage: UNK, DAILY (1/D)

REACTIONS (1)
  - VISUAL IMPAIRMENT [None]
